FAERS Safety Report 8025940-6 (Version None)
Quarter: 2012Q1

REPORT INFORMATION
  Report Type: 
  Country: None (occurrence: None)
  Receive Date: 20120105
  Receipt Date: 20110428
  Transmission Date: 20120608
  Serious: No
  Sender: FDA-Public Use
  Company Number: US-ABBOTT-11P-163-0722642-00

PATIENT
  Sex: Male

DRUGS (3)
  1. SYNTHROID [Suspect]
     Route: 048
     Dates: start: 20110101, end: 20110301
  2. SYNTHROID [Suspect]
     Indication: THYROIDECTOMY
     Route: 048
     Dates: start: 20000101, end: 20100101
  3. SYNTHROID [Suspect]
     Route: 048
     Dates: start: 20110301

REACTIONS (2)
  - SKIN ODOUR ABNORMAL [None]
  - BLOOD THYROID STIMULATING HORMONE ABNORMAL [None]
